FAERS Safety Report 10220142 (Version 1)
Quarter: 2014Q2

REPORT INFORMATION
  Report Type: Spontaneous
  Country: US (occurrence: US)
  Receive Date: 20140605
  Receipt Date: 20140605
  Transmission Date: 20141212
  Serious: No
  Sender: FDA-Public Use
  Company Number: US-GILEAD-2014-0104463

PATIENT
  Age: 37 Year
  Sex: Male
  Weight: 70.3 kg

DRUGS (3)
  1. SOVALDI [Suspect]
     Indication: HEPATITIS C
     Dosage: 400 MG, UNK
     Route: 065
     Dates: start: 20140402
  2. PEGASYS [Concomitant]
     Dosage: 180 ?G, UNK
  3. RIBAVIRIN [Concomitant]
     Dosage: 1000 MG, UNK

REACTIONS (1)
  - Gynaecomastia [Unknown]
